FAERS Safety Report 6130931-6 (Version None)
Quarter: 2009Q1

REPORT INFORMATION
  Report Type: 
  Country: None (occurrence: None)
  Receive Date: 20090325
  Receipt Date: 20090317
  Transmission Date: 20090719
  Serious: Yes (Other)
  Sender: FDA-Public Use
  Company Number: US-ASTRAZENECA-2009UW07002

PATIENT
  Age: 53 Year
  Sex: Male

DRUGS (3)
  1. ATACAND HCT [Suspect]
     Route: 048
     Dates: end: 20090301
  2. PLENDIL [Suspect]
     Route: 048
     Dates: end: 20090301
  3. NEXIUM [Concomitant]

REACTIONS (4)
  - BLOOD PRESSURE INCREASED [None]
  - ERYTHEMA [None]
  - HEART RATE INCREASED [None]
  - INTERVERTEBRAL DISC PROTRUSION [None]
